FAERS Safety Report 4842873-4 (Version None)
Quarter: 2005Q4

REPORT INFORMATION
  Report Type: 
  Country: None (occurrence: None)
  Receive Date: 20051201
  Receipt Date: 20051117
  Transmission Date: 20060501
  Serious: Yes (Hospitalization)
  Sender: FDA-Public Use
  Company Number: PHEH2005US12651

PATIENT
  Age: 65 Year
  Sex: Female
  Weight: 49.433 kg

DRUGS (8)
  1. LOPRESSOR [Suspect]
     Indication: HYPERTENSION
     Dosage: 75 MG, BID
     Route: 048
     Dates: start: 20020502
  2. DIOVAN [Suspect]
     Indication: HYPERTENSION
     Dosage: 160 MG, QD
     Route: 048
     Dates: start: 20020920
  3. FERRLECIT /USA/ [Suspect]
     Indication: IRON DEFICIENCY ANAEMIA
     Dosage: 62.5 MG/5ML
     Route: 042
     Dates: start: 20050101, end: 20051029
  4. PROTONIX [Concomitant]
     Dates: start: 20021220
  5. ATIVAN [Concomitant]
     Dates: start: 20020920
  6. LIPITOR [Concomitant]
     Dates: start: 20020402
  7. COLACE [Concomitant]
     Dates: start: 20021228
  8. ACETYLSALICYLIC ACID [Concomitant]
     Dates: start: 20020920

REACTIONS (1)
  - LOSS OF CONSCIOUSNESS [None]
